FAERS Safety Report 14240066 (Version 1)
Quarter: 2017Q4

REPORT INFORMATION
  Report Type: Spontaneous
  Country: US (occurrence: US)
  Receive Date: 20171128
  Receipt Date: 20171128
  Transmission Date: 20180321
  Serious: Yes (Death)
  Sender: FDA-Public Use
  Company Number: None

PATIENT
  Age: 57 Year
  Sex: Male

DRUGS (12)
  1. ENOXAPARIN [Suspect]
     Active Substance: ENOXAPARIN
     Indication: BLOOD DISORDER
     Dosage: ?          OTHER FREQUENCY:INJECT;?
     Route: 058
  2. TRICOR [Concomitant]
     Active Substance: FENOFIBRATE
  3. LIPITOR [Concomitant]
     Active Substance: ATORVASTATIN CALCIUM
  4. MULTIVITAMINS [Concomitant]
     Active Substance: VITAMINS
  5. ALBUTEROL SULFATE. [Concomitant]
     Active Substance: ALBUTEROL SULFATE
  6. CRANBERRY JUICE POWDER [Concomitant]
  7. LACTOSE INTOLERANCE [Concomitant]
  8. VITAMIN C [Concomitant]
     Active Substance: ASCORBIC ACID
  9. CLONIDINE HCL [Concomitant]
     Active Substance: CLONIDINE HYDROCHLORIDE
  10. COLACE [Concomitant]
     Active Substance: DOCUSATE SODIUM
  11. KEPPRA [Concomitant]
     Active Substance: LEVETIRACETAM
  12. OMEPRAZOLE. [Concomitant]
     Active Substance: OMEPRAZOLE

REACTIONS (1)
  - Death [None]
